FAERS Safety Report 5366848-4 (Version None)
Quarter: 2007Q2

REPORT INFORMATION
  Report Type: 
  Country: None (occurrence: None)
  Receive Date: 20070622
  Receipt Date: 20061006
  Transmission Date: 20071010
  Serious: No
  Sender: FDA-Public Use
  Company Number: US-ASTRAZENECA-2006UW19540

PATIENT
  Age: 60 Year
  Sex: Female
  Weight: 68 kg

DRUGS (5)
  1. RHINOCORT [Suspect]
     Indication: EAR DISORDER
     Route: 045
  2. RHINOCORT [Suspect]
     Indication: OTORRHOEA
     Route: 045
  3. COUMADIN [Concomitant]
  4. ZYRTEC [Concomitant]
  5. THYROID TAB [Concomitant]

REACTIONS (6)
  - EYE IRRITATION [None]
  - EYE PRURITUS [None]
  - EYE SWELLING [None]
  - EYELID MARGIN CRUSTING [None]
  - LACRIMATION INCREASED [None]
  - OCULAR HYPERAEMIA [None]
